FAERS Safety Report 7563165-9 (Version None)
Quarter: 2011Q2

REPORT INFORMATION
  Report Type: 
  Country: None (occurrence: None)
  Receive Date: 20110622
  Receipt Date: 20110614
  Transmission Date: 20111010
  Serious: Yes (Hospitalization, Other)
  Sender: FDA-Public Use
  Company Number: BR-SANOFI-AVENTIS-2011SA038108

PATIENT
  Age: 77 Year
  Sex: Female
  Weight: 57 kg

DRUGS (3)
  1. LANTUS [Suspect]
     Route: 058
     Dates: end: 20110601
  2. LANTUS [Suspect]
     Route: 058
     Dates: start: 20110601
  3. SOLOSTAR [Suspect]

REACTIONS (2)
  - PYELONEPHRITIS [None]
  - SEPTIC SHOCK [None]
